FAERS Safety Report 9293892 (Version 1)
Quarter: 2013Q1

REPORT INFORMATION
  Report Type: Spontaneous
  Country: US (occurrence: None)
  Receive Date: 20121217
  Receipt Date: 20121217
  Transmission Date: 20140127
  Serious: Yes (Other)
  Sender: FDA-Public Use
  Company Number: 1000036736

PATIENT
  Age: 73 Year
  Sex: Male

DRUGS (8)
  1. NAMENDA [Suspect]
     Indication: PARKINSON^S DISEASE
     Dosage: 10 MG, (10 MG, 1 IN 1 D), ORAL
     Route: 048
     Dates: start: 201201, end: 20120627
  2. XANAX [Suspect]
  3. SINEMET [Suspect]
  4. RASAGILINE [Suspect]
  5. MIRAPEX [Suspect]
  6. FINASTERIDE [Suspect]
  7. PLAVIX (CLOPIDOGREL BISULFATE) (CLOPIDOGREL BISULFATE) [Suspect]
  8. PRAVASTATIN [Suspect]

REACTIONS (2)
  - Dyskinesia [None]
  - Off label use [None]
